FAERS Safety Report 7652344-8 (Version None)
Quarter: 2011Q3

REPORT INFORMATION
  Report Type: 
  Country: None (occurrence: None)
  Receive Date: 20110801
  Receipt Date: 20110801
  Transmission Date: 20111222
  Serious: Yes (Hospitalization)
  Sender: FDA-Public Use
  Company Number: None

PATIENT
  Age: 25 Year
  Sex: Female
  Weight: 72.3 kg

DRUGS (6)
  1. CITALOPRAM HYDROBROMIDE [Concomitant]
  2. PROAIR HFA [Concomitant]
  3. ETONOGESTREL IMPLANT [Concomitant]
  4. DISULFIRAM [Suspect]
     Indication: ALCOHOLISM
     Dosage: 1 TABLET DAILY BY MOUTH
     Route: 048
     Dates: start: 20110401, end: 20110407
  5. ALPRAZOLAM [Concomitant]
  6. ZOLPIDEM [Concomitant]

REACTIONS (14)
  - HEADACHE [None]
  - CHILLS [None]
  - NAUSEA [None]
  - DYSPNOEA [None]
  - DIZZINESS [None]
  - LETHARGY [None]
  - BACK PAIN [None]
  - ABDOMINAL PAIN [None]
  - JAUNDICE [None]
  - ASTHENIA [None]
  - LIVER FUNCTION TEST ABNORMAL [None]
  - PAIN [None]
  - IDIOSYNCRATIC DRUG REACTION [None]
  - REFUSAL OF TREATMENT BY PATIENT [None]
